FAERS Safety Report 18735206 (Version 1)
Quarter: 2021Q1

REPORT INFORMATION
  Report Type: Spontaneous
  Country: US (occurrence: US)
  Receive Date: 20210113
  Receipt Date: 20210113
  Transmission Date: 20210419
  Serious: No
  Sender: FDA-Public Use
  Company Number: US-BAYER-2021-018330

PATIENT
  Age: 72 Year
  Sex: Male

DRUGS (2)
  1. MIRALAX [Suspect]
     Active Substance: POLYETHYLENE GLYCOL 3350
     Indication: FAECALOMA
     Dosage: HALF OF THE PACKET IN 6 TO 8 OUNCES OF WATER
     Route: 048
  2. VITAMINS NOS [Concomitant]
     Active Substance: VITAMINS

REACTIONS (3)
  - Bowel movement irregularity [Unknown]
  - Product use in unapproved indication [Unknown]
  - Incorrect dose administered [Unknown]
